FAERS Safety Report 17740076 (Version 2)
Quarter: 2020Q2

REPORT INFORMATION
  Report Type: Other
  Country: US (occurrence: US)
  Receive Date: 20200504
  Receipt Date: 20200513
  Transmission Date: 20200714
  Serious: Yes (Hospitalization, Congenital Anomaly, Other)
  Sender: FDA-Public Use
  Company Number: US-AMAG PHARMACEUTICALS, INC.-AMAG202001587

PATIENT
  Age: 0 Year
  Sex: Male
  Weight: .82 kg

DRUGS (1)
  1. MAKENA [Suspect]
     Active Substance: HYDROXYPROGESTERONE CAPROATE
     Indication: FOETAL EXPOSURE DURING PREGNANCY
     Dosage: 250 MG/ML, WEEKLY
     Route: 064
     Dates: start: 20170927, end: 2017

REACTIONS (2)
  - Premature baby [Recovered/Resolved]
  - Cerebral palsy [Unknown]

NARRATIVE: CASE EVENT DATE: 20171207
